FAERS Safety Report 6090250-3 (Version None)
Quarter: 2009Q1

REPORT INFORMATION
  Report Type: 
  Country: None (occurrence: None)
  Receive Date: 20090220
  Receipt Date: 20090216
  Transmission Date: 20090719
  Serious: Yes (Other)
  Sender: FDA-Public Use
  Company Number: 2009SP003448

PATIENT
  Sex: Male

DRUGS (2)
  1. VIRAFERONPEG [Suspect]
     Indication: HEPATITIS C
     Dosage: 108 MCG;QW;SC
     Route: 058
     Dates: start: 20080104, end: 20080301
  2. REBETOL [Suspect]
     Indication: HEPATITIS C
     Dosage: 1000 MG;QD;PO
     Route: 048
     Dates: start: 20080104, end: 20080301

REACTIONS (2)
  - EYE PAIN [None]
  - VISUAL ACUITY REDUCED [None]
